FAERS Safety Report 12028690 (Version 1)
Quarter: 2016Q1

REPORT INFORMATION
  Report Type: Report from Study
  Country: US (occurrence: US)
  Receive Date: 20160207
  Receipt Date: 20160207
  Transmission Date: 20160526
  Serious: Yes (Hospitalization, Other)
  Sender: FDA-Public Use
  Company Number: US-ABBVIE-15K-163-1498367-00

PATIENT
  Sex: Male
  Weight: 87.17 kg

DRUGS (2)
  1. COSENTYX [Concomitant]
     Active Substance: SECUKINUMAB
     Indication: PRODUCT USED FOR UNKNOWN INDICATION
  2. HUMIRA [Suspect]
     Active Substance: ADALIMUMAB
     Indication: PSORIASIS
     Route: 058
     Dates: end: 2013

REACTIONS (11)
  - Cardiac failure [Unknown]
  - Coronary artery disease [Not Recovered/Not Resolved]
  - Post procedural complication [Unknown]
  - Blood urine present [Not Recovered/Not Resolved]
  - Cystitis [Recovered/Resolved]
  - Bladder injury [Unknown]
  - Cataract [Recovered/Resolved]
  - Coronary artery occlusion [Not Recovered/Not Resolved]
  - Prostate cancer [Recovered/Resolved]
  - Hypoacusis [Not Recovered/Not Resolved]
  - Ear infection [Recovered/Resolved]

NARRATIVE: CASE EVENT DATE: 2013
